FAERS Safety Report 12223481 (Version 1)
Quarter: 2016Q1

REPORT INFORMATION
  Report Type: Spontaneous
  Country: US (occurrence: US)
  Receive Date: 20160330
  Receipt Date: 20160330
  Transmission Date: 20160526
  Serious: No
  Sender: FDA-Public Use
  Company Number: ALCN2014US006543

PATIENT
  Sex: Male

DRUGS (3)
  1. DIOVAN [Concomitant]
     Active Substance: VALSARTAN
     Indication: BLOOD PRESSURE MEASUREMENT
     Dosage: 160 MG, QD
     Route: 048
  2. ASPIRIN. [Concomitant]
     Active Substance: ASPIRIN
     Dosage: 81 MG, QD
     Route: 048
  3. TRAVATAN Z [Suspect]
     Active Substance: TRAVOPROST
     Indication: PIGMENTARY GLAUCOMA
     Dosage: UNK
     Route: 047

REACTIONS (2)
  - Blood pressure increased [Recovered/Resolved]
  - Anxiety [Recovered/Resolved]
